FAERS Safety Report 22075572 (Version 1)
Quarter: 2023Q1

REPORT INFORMATION
  Report Type: Spontaneous
  Country: US (occurrence: None)
  Receive Date: 20230308
  Receipt Date: 20230308
  Transmission Date: 20230417
  Serious: Yes (Death)
  Sender: FDA-Public Use
  Company Number: None

PATIENT
  Sex: Female
  Weight: 56.25 kg

DRUGS (7)
  1. CAPECITABINE [Suspect]
     Active Substance: CAPECITABINE
     Indication: Colon cancer
     Dosage: OTHER QUANTITY : 1500-1000MG?OTHER FREQUENCY : AM/PM?
     Route: 048
  2. BUMEX [Concomitant]
     Active Substance: BUMETANIDE
  3. ELIQUIS [Concomitant]
     Active Substance: APIXABAN
  4. FERROUS SULFATE [Concomitant]
     Active Substance: FERROUS SULFATE
  5. METOPROLOL [Concomitant]
     Active Substance: METOPROLOL
  6. SERTRALINE [Concomitant]
     Active Substance: SERTRALINE HYDROCHLORIDE
  7. SIMVASTATIN [Concomitant]
     Active Substance: SIMVASTATIN

REACTIONS (1)
  - Hospice care [None]
